FAERS Safety Report 7384177-4 (Version None)
Quarter: 2011Q1

REPORT INFORMATION
  Report Type: 
  Country: None (occurrence: None)
  Receive Date: 20110330
  Receipt Date: 20110324
  Transmission Date: 20110831
  Serious: Yes (Death, Hospitalization)
  Sender: FDA-Public Use
  Company Number: B0708636A

PATIENT
  Sex: Female
  Weight: 50 kg

DRUGS (7)
  1. XELODA [Suspect]
     Dosage: 2400MG PER DAY
     Route: 048
     Dates: start: 20090926, end: 20091119
  2. XELODA [Suspect]
     Dosage: 600MG PER DAY
     Route: 048
     Dates: start: 20100213, end: 20100602
  3. PACLITAXEL [Suspect]
     Indication: BREAST CANCER
     Dosage: 80MG PER DAY
     Route: 042
     Dates: start: 20100519, end: 20100526
  4. XELODA [Suspect]
     Dosage: 3000MG PER DAY
     Route: 048
     Dates: start: 20100113, end: 20100206
  5. TYKERB [Suspect]
     Indication: BREAST CANCER
     Dosage: 1250MG PER DAY
     Route: 048
     Dates: start: 20090926, end: 20100602
  6. XELODA [Suspect]
     Dosage: 1800MG PER DAY
     Route: 048
     Dates: start: 20091213, end: 20100105
  7. VINORELBINE TARTRATE [Concomitant]
     Indication: BREAST CANCER
     Dosage: 35MG PER DAY
     Dates: start: 20100212, end: 20100512

REACTIONS (5)
  - PERICARDIAL EFFUSION [None]
  - ASCITES [None]
  - FEBRILE NEUTROPENIA [None]
  - HEPATIC FUNCTION ABNORMAL [None]
  - PLEURAL EFFUSION [None]
